FAERS Safety Report 18724084 (Version 1)
Quarter: 2021Q1

REPORT INFORMATION
  Report Type: Spontaneous
  Country: US (occurrence: US)
  Receive Date: 20210111
  Receipt Date: 20210111
  Transmission Date: 20210419
  Serious: Yes (Hospitalization)
  Sender: FDA-Public Use
  Company Number: None

PATIENT
  Age: 74 Year
  Sex: Male

DRUGS (1)
  1. DOFETILIDE (DOFETILIDE 500MCG CAP, UD) [Suspect]
     Active Substance: DOFETILIDE
     Indication: ATRIAL FIBRILLATION
     Route: 048
     Dates: start: 20201103, end: 20201105

REACTIONS (2)
  - Electrocardiogram QT prolonged [None]
  - Ventricular tachycardia [None]

NARRATIVE: CASE EVENT DATE: 20201105
